FAERS Safety Report 5130916-2 (Version None)
Quarter: 2006Q4

REPORT INFORMATION
  Report Type: 
  Country: None (occurrence: None)
  Receive Date: 20061129
  Receipt Date: 20060523
  Transmission Date: 20070319
  Serious: No
  Sender: FDA-Public Use
  Company Number: PHEH2006US04702

PATIENT

DRUGS (4)
  1. EXJADE [Suspect]
     Indication: BLOOD IRON DECREASED
     Dosage: 1875 MG, QD , ORAL
     Route: 048
     Dates: start: 20060314
  2. LEUKINE [Suspect]
  3. PROCRIT [Concomitant]
  4. RESTASIS             (CICLOSPORIN) [Concomitant]

REACTIONS (2)
  - EYE IRRITATION [None]
  - VISUAL DISTURBANCE [None]
